FAERS Safety Report 6099115-4 (Version None)
Quarter: 2009Q1

REPORT INFORMATION
  Report Type: 
  Country: None (occurrence: None)
  Receive Date: 20090302
  Receipt Date: 20090225
  Transmission Date: 20090719
  Serious: No
  Sender: FDA-Public Use
  Company Number: US-B.I. PHARMACEUTICALS,INC./RIDGEFIELD-2009-BP-02316BP

PATIENT
  Age: 35 Year
  Sex: Female

DRUGS (1)
  1. FLOMAX [Suspect]
     Indication: NEPHROLITHIASIS
     Route: 048

REACTIONS (2)
  - MEDICATION ERROR [None]
  - NEPHROLITHIASIS [None]
